FAERS Safety Report 12740901 (Version 1)
Quarter: 2016Q3

REPORT INFORMATION
  Report Type: Spontaneous
  Country: US (occurrence: US)
  Receive Date: 20160914
  Receipt Date: 20160914
  Transmission Date: 20161109
  Serious: Yes (Other)
  Sender: FDA-Public Use
  Company Number: US-TEVA-691700USA

PATIENT
  Age: 42 Year
  Sex: Male

DRUGS (8)
  1. ALLOPURINOL. [Concomitant]
     Active Substance: ALLOPURINOL
  2. BENICAR [Concomitant]
     Active Substance: OLMESARTAN MEDOXOMIL
  3. COPAXONE [Suspect]
     Active Substance: GLATIRAMER ACETATE
     Indication: MULTIPLE SCLEROSIS
     Dosage: 17.1429 MILLIGRAM DAILY;
     Route: 058
     Dates: start: 20160426
  4. BACLOFEN. [Concomitant]
     Active Substance: BACLOFEN
  5. FOLIC ACID. [Concomitant]
     Active Substance: FOLIC ACID
  6. SYMBICORT [Concomitant]
     Active Substance: BUDESONIDE\FORMOTEROL FUMARATE DIHYDRATE
  7. LYRICA [Concomitant]
     Active Substance: PREGABALIN
  8. CRESTOR [Concomitant]
     Active Substance: ROSUVASTATIN CALCIUM

REACTIONS (5)
  - Injection site reaction [Unknown]
  - Gait disturbance [Unknown]
  - Thermal burn [Unknown]
  - Multiple sclerosis relapse [Unknown]
  - Scar [Unknown]

NARRATIVE: CASE EVENT DATE: 20160823
